FAERS Safety Report 11870665 (Version 1)
Quarter: 2015Q4

REPORT INFORMATION
  Report Type: Spontaneous
  Country: US (occurrence: None)
  Receive Date: 20151223
  Receipt Date: 20151223
  Transmission Date: 20160305
  Serious: Yes (Hospitalization)
  Sender: FDA-Public Use
  Company Number: None

PATIENT
  Age: 57 Year
  Sex: Female
  Weight: 64.41 kg

DRUGS (1)
  1. REGORAFENIB 160MG BAYER [Suspect]
     Active Substance: REGORAFENIB
     Indication: COLORECTAL CANCER
     Route: 048
     Dates: start: 20151204, end: 20151219

REACTIONS (4)
  - Myalgia [None]
  - Vomiting [None]
  - Rash [None]
  - Confusional state [None]

NARRATIVE: CASE EVENT DATE: 20151222
